FAERS Safety Report 5277151-5 (Version None)
Quarter: 2007Q1

REPORT INFORMATION
  Report Type: 
  Country: None (occurrence: None)
  Receive Date: 20070327
  Receipt Date: 20070319
  Transmission Date: 20070707
  Serious: Yes (Hospitalization, Other)
  Sender: FDA-Public Use
  Company Number: HQWYE499110NOV05

PATIENT
  Sex: Male
  Weight: 70.5 kg

DRUGS (6)
  1. RAPAMUNE [Suspect]
     Indication: PROPHYLAXIS AGAINST TRANSPLANT REJECTION
     Route: 048
     Dates: start: 20050523
  2. PREDNISONE [Concomitant]
     Route: 048
     Dates: start: 20050524
  3. SULFAMETHOXAZOLE + TRIMETHOPRIM [Concomitant]
     Route: 048
     Dates: start: 20050527
  4. CYCLOSPORINE [Concomitant]
     Route: 048
     Dates: start: 20050523, end: 20050619
  5. CYCLOSPORINE [Concomitant]
     Route: 048
     Dates: start: 20050620, end: 20050620
  6. CYCLOSPORINE [Concomitant]
     Route: 048
     Dates: start: 20050621

REACTIONS (1)
  - RENAL TUBULAR NECROSIS [None]
